FAERS Safety Report 11255972 (Version 1)
Quarter: 2015Q3

REPORT INFORMATION
  Report Type: Spontaneous
  Country: ES (occurrence: ES)
  Receive Date: 20150709
  Receipt Date: 20150709
  Transmission Date: 20151125
  Serious: Yes (Hospitalization, Other)
  Sender: FDA-Public Use
  Company Number: ES-SA-2015SA097276

PATIENT
  Age: 54 Year
  Sex: Female

DRUGS (1)
  1. CLEXANE [Suspect]
     Active Substance: ENOXAPARIN SODIUM
     Indication: SKIN ULCER
     Route: 051
     Dates: start: 20150616, end: 20150623

REACTIONS (1)
  - Acute febrile neutrophilic dermatosis [Unknown]

NARRATIVE: CASE EVENT DATE: 20150617
